FAERS Safety Report 25145784 (Version 1)
Quarter: 2025Q2

REPORT INFORMATION
  Report Type: Spontaneous
  Country: US (occurrence: None)
  Receive Date: 20250401
  Receipt Date: 20250401
  Transmission Date: 20250717
  Serious: No
  Sender: FDA-CTU
  Company Number: None

PATIENT
  Age: 66 Year
  Sex: Female
  Weight: 91.35 kg

DRUGS (11)
  1. UBRELVY [Suspect]
     Active Substance: UBROGEPANT
     Indication: Migraine with aura
     Dates: start: 20230101
  2. SYNTHROID [Suspect]
     Active Substance: LEVOTHYROXINE SODIUM
  3. CYTOMEL [Suspect]
     Active Substance: LIOTHYRONINE SODIUM
  4. QULIPTA [Suspect]
     Active Substance: ATOGEPANT
  5. UBRELVY [Suspect]
     Active Substance: UBROGEPANT
  6. SPIRONOLACTONE [Suspect]
     Active Substance: SPIRONOLACTONE
  7. LASIX [Suspect]
     Active Substance: FUROSEMIDE
  8. ELIQUIS [Suspect]
     Active Substance: APIXABAN
  9. VALSARTAN [Suspect]
     Active Substance: VALSARTAN
  10. DILTIAZEM [Suspect]
     Active Substance: DILTIAZEM
  11. ATORVASTATIN [Suspect]
     Active Substance: ATORVASTATIN

REACTIONS (1)
  - Migraine [None]

NARRATIVE: CASE EVENT DATE: 20250331
